FAERS Safety Report 10089276 (Version 2)
Quarter: 2014Q2

REPORT INFORMATION
  Report Type: Report from Study
  Country: DE (occurrence: DE)
  Receive Date: 20140421
  Receipt Date: 20140421
  Transmission Date: 20141212
  Serious: Yes (Life-Threatening, Hospitalization, Other)
  Sender: FDA-Public Use
  Company Number: DE-SA-THYM-1002599

PATIENT
  Age: 67 Year
  Sex: Male
  Weight: 100 kg

DRUGS (39)
  1. ANTI-THYMOCYTE GLOBULIN (RABBIT) [Suspect]
     Indication: IMMUNOSUPPRESSION
     Dosage: 165 MG, QD
     Route: 042
     Dates: start: 20110516
  2. TACROLIMUS [Suspect]
     Indication: IMMUNOSUPPRESSION
     Dosage: 10 MG, QD
     Route: 048
     Dates: start: 20110516
  3. TACROLIMUS [Suspect]
     Indication: IMMUNOSUPPRESSION
     Dosage: 5 MG, QD
     Dates: start: 20120204
  4. TACROLIMUS [Suspect]
     Indication: IMMUNOSUPPRESSION
     Dosage: 5 MG, QD
     Route: 048
     Dates: start: 20120226, end: 20120226
  5. TACROLIMUS [Suspect]
     Indication: IMMUNOSUPPRESSION
     Dosage: 6 MG, QD
     Route: 048
     Dates: start: 20120227, end: 20120312
  6. MYCOPHENOLATE MOFETIL [Suspect]
     Indication: IMMUNOSUPPRESSION
     Dosage: 500 MG, BID
     Route: 048
     Dates: start: 20110516
  7. PREDNISOLONE [Suspect]
     Indication: IMMUNOSUPPRESSION
     Dosage: 5 MG, QD
     Route: 048
     Dates: start: 20110516
  8. METOPROLOL [Concomitant]
     Dosage: 95 MG, PRN
     Route: 065
     Dates: start: 2011
  9. METOPROLOL [Concomitant]
     Dosage: 300 MG, UNK
  10. SIMVAHEXAL [Concomitant]
     Dosage: 40 MG, UNK
     Dates: start: 2011
  11. GABAPENTIN [Concomitant]
     Dosage: 300 MG, UNK
     Dates: start: 2011
  12. ASS [Concomitant]
     Dosage: 100 MG, UNK
     Dates: start: 2011
  13. ALLOPURINOL [Concomitant]
     Dosage: 150 MG, UNK
     Dates: start: 2011, end: 20111028
  14. PANTOL [Concomitant]
     Dosage: 40 MG, UNK
     Dates: start: 20110516
  15. SULTANOL [Concomitant]
     Dosage: UNK
     Dates: start: 20110518
  16. SULTANOL [Concomitant]
     Dosage: UNK
     Route: 065
     Dates: start: 20120205
  17. ALVOCIDIB [Concomitant]
     Dosage: UNK
     Dates: start: 20110518
  18. CARMEN [Concomitant]
     Dosage: 10 MG, UNK
     Dates: start: 20110519
  19. HEPARIN [Concomitant]
     Dosage: UNK
     Route: 058
     Dates: start: 20110516
  20. MUCOSOLVAN [Concomitant]
     Dosage: 75 MG, UNK
  21. ASPISOL [Concomitant]
     Dosage: 500 MG, UNK
     Route: 065
     Dates: start: 20110722, end: 20110722
  22. NORVASC [Concomitant]
     Dosage: 10 MG, UNK
     Route: 065
  23. SIMVASTATIN [Concomitant]
     Dosage: 10 MG, UNK
     Route: 065
     Dates: end: 20120213
  24. SODIUM BICARBONATE [Concomitant]
     Dosage: 1 G, TID
     Route: 065
  25. TILIDINE [Concomitant]
     Dosage: 50 MG, UNK?STOP DATE: 03-FEB-2012
     Route: 065
  26. PANTOPRAZOLE SODIUM [Concomitant]
     Dosage: 40 MG, UNK
     Route: 065
  27. ARANESP [Concomitant]
     Dosage: UNK
     Route: 065
  28. METOPROLOL SUCCINATE [Concomitant]
     Dosage: 95 MG, UNK
     Route: 065
  29. IPRATROPIUM BROMIDE [Concomitant]
     Dosage: PRN
     Route: 065
     Dates: start: 20120205
  30. FORMOTEROL [Concomitant]
     Dosage: 12 MCG, BID
     Route: 065
     Dates: start: 20120320
  31. TIOTROPIUM BROMIDE [Concomitant]
     Dosage: 18 MCG, QD
     Route: 065
     Dates: start: 20120205
  32. COTRIM [Concomitant]
     Dosage: 480 MG, TIW
     Route: 065
  33. PANTOPRAZOLE [Concomitant]
     Dosage: 40 MG, UNK
     Route: 065
  34. AMLODIPINE BESILATE [Concomitant]
     Dosage: 5 MG, UNK
     Route: 065
  35. TORASEMIDE [Concomitant]
     Dosage: 10 MG, UNK
     Route: 065
     Dates: end: 20120203
  36. STAPHYLEX [Concomitant]
     Dates: start: 20110722, end: 20110722
  37. STAPHYLEX [Concomitant]
     Dates: start: 20110723, end: 20110801
  38. LISINOPRIL [Concomitant]
     Dosage: 5 MG, UNK?STOP DATE: 31-JAN-2012
     Route: 065
  39. PROGRAF [Concomitant]
     Dosage: 6 MG, QD
     Route: 065
     Dates: start: 20120313

REACTIONS (20)
  - Left ventricular hypertrophy [Unknown]
  - Heart valve incompetence [Unknown]
  - Acute myocardial infarction [Recovered/Resolved with Sequelae]
  - Arterial stenosis [Recovered/Resolved with Sequelae]
  - Transplant dysfunction [Recovered/Resolved with Sequelae]
  - Blood creatinine increased [Recovered/Resolved]
  - Chest pain [Recovered/Resolved]
  - Transplant failure [Recovered/Resolved]
  - Transplant failure [Recovered/Resolved with Sequelae]
  - Vocal cord paralysis [Recovered/Resolved]
  - Diarrhoea [Unknown]
  - Diarrhoea [Recovered/Resolved]
  - Urinary tract infection [Recovered/Resolved]
  - Pneumonia [Recovered/Resolved]
  - Urinary tract infection [Recovered/Resolved]
  - Enterococcal infection [Recovered/Resolved]
  - Urinary tract infection [Recovered/Resolved]
  - Enterococcal infection [Recovered/Resolved]
  - Endocarditis [Recovered/Resolved with Sequelae]
  - Urinary tract infection [Recovered/Resolved]
